FAERS Safety Report 24846022 (Version 4)
Quarter: 2025Q1

REPORT INFORMATION
  Report Type: Spontaneous
  Country: BR (occurrence: BR)
  Receive Date: 20250115
  Receipt Date: 20250226
  Transmission Date: 20250408
  Serious: Yes (Hospitalization)
  Sender: ABBVIE
  Company Number: BR-ABBOTT-2024A-1392620

PATIENT
  Sex: Male
  Weight: 72 kg

DRUGS (4)
  1. LIPIDIL [Suspect]
     Active Substance: FENOFIBRATE
     Indication: Blood triglycerides abnormal
     Dosage: FORM STRENGTH: 160 MG
     Route: 048
  2. LIPIDIL [Suspect]
     Active Substance: FENOFIBRATE
     Indication: Blood triglycerides abnormal
     Route: 048
  3. ASPIRIN\DIHYDROXYALUMINUM AMINOACETATE ANHYDROUS\MAGNESIUM CARBONATE [Concomitant]
     Active Substance: ASPIRIN\DIHYDROXYALUMINUM AMINOACETATE ANHYDROUS\MAGNESIUM CARBONATE
     Indication: Blood cholesterol
     Dosage: ONCE A DAY
  4. EZETIMIBE [Concomitant]
     Active Substance: EZETIMIBE
     Indication: Melanocytic naevus

REACTIONS (6)
  - Back disorder [Unknown]
  - Product physical issue [Unknown]
  - Underdose [Unknown]
  - Hospitalisation [Not Recovered/Not Resolved]
  - Inappropriate schedule of product administration [Unknown]
  - Product storage error [Unknown]
